FAERS Safety Report 7125794-6 (Version None)
Quarter: 2010Q4

REPORT INFORMATION
  Report Type: 
  Country: None (occurrence: None)
  Receive Date: 20101129
  Receipt Date: 20101125
  Transmission Date: 20110411
  Serious: Yes (Other)
  Sender: FDA-Public Use
  Company Number: B0686098A

PATIENT
  Sex: Male

DRUGS (5)
  1. AUGMENTIN [Suspect]
     Indication: INFECTION
     Dosage: 1UNIT SINGLE DOSE
     Route: 048
     Dates: start: 20100901, end: 20100901
  2. PARACETAMOL [Concomitant]
     Route: 048
     Dates: start: 20090901
  3. RHINOCORT [Concomitant]
     Route: 065
  4. ANTIHISTAMINIC [Concomitant]
     Route: 065
  5. VENTOLIN [Concomitant]
     Route: 065

REACTIONS (5)
  - ANAPHYLACTIC REACTION [None]
  - DYSPNOEA [None]
  - ERYTHEMA [None]
  - PRURITUS [None]
  - URTICARIA [None]
